FAERS Safety Report 4441203-X (Version None)
Quarter: 2004Q3

REPORT INFORMATION
  Report Type: 
  Country: None (occurrence: None)
  Receive Date: 20040728
  Receipt Date: 20040406
  Transmission Date: 20050211
  Serious: No
  Sender: FDA-Public Use
  Company Number: USA040464303

PATIENT
  Age: 50 Year
  Sex: Female
  Weight: 70 kg

DRUGS (3)
  1. STRATTERA [Suspect]
     Indication: DISTURBANCE IN ATTENTION
     Dosage: 120 MG DAY
     Dates: start: 20031201
  2. PROZAC [Suspect]
     Indication: ANXIETY
  3. PROZAC [Suspect]
     Indication: DEPRESSION

REACTIONS (5)
  - DRUG INEFFECTIVE [None]
  - HEART RATE INCREASED [None]
  - INSOMNIA [None]
  - PRESCRIBED OVERDOSE [None]
  - SOMNOLENCE [None]
